FAERS Safety Report 10159668 (Version 1)
Quarter: 2014Q2

REPORT INFORMATION
  Report Type: Spontaneous
  Country: US (occurrence: US)
  Receive Date: 20140508
  Receipt Date: 20140508
  Transmission Date: 20141212
  Serious: No
  Sender: FDA-Public Use
  Company Number: US-GLAXOSMITHKLINE-A1020223A

PATIENT
  Age: 63 Year
  Sex: Female

DRUGS (10)
  1. TYKERB [Suspect]
     Indication: BREAST CANCER
     Dosage: 5TAB PER DAY
     Route: 048
     Dates: start: 201301, end: 20130326
  2. PREDNISOLONE [Concomitant]
     Route: 047
  3. PROMETHAZINE [Concomitant]
  4. HYDROXINE [Concomitant]
  5. NYSTATIN ORAL SUSPENSION [Concomitant]
  6. MEDROL [Concomitant]
  7. DOXYCYCLINE [Concomitant]
  8. LOMOTIL [Concomitant]
  9. ZOFRAN [Concomitant]
  10. CYMBALTA [Concomitant]

REACTIONS (1)
  - Hepatic enzyme increased [Unknown]
